FAERS Safety Report 23407984 (Version 1)
Quarter: 2024Q1

REPORT INFORMATION
  Report Type: Spontaneous
  Country: DE (occurrence: None)
  Receive Date: 20240117
  Receipt Date: 20240117
  Transmission Date: 20240409
  Serious: No
  Sender: FDA-Public Use
  Company Number: DE-ROCHE-3455464

PATIENT
  Sex: Female
  Weight: 47 kg

DRUGS (1)
  1. OCREVUS [Suspect]
     Active Substance: OCRELIZUMAB
     Indication: Primary progressive multiple sclerosis
     Route: 065

REACTIONS (3)
  - General physical health deterioration [Unknown]
  - CD19 lymphocytes decreased [Unknown]
  - Interferon gamma release assay positive [Unknown]
